FAERS Safety Report 17562481 (Version 1)
Quarter: 2020Q1

REPORT INFORMATION
  Report Type: Spontaneous
  Country: HU (occurrence: HU)
  Receive Date: 20200319
  Receipt Date: 20200319
  Transmission Date: 20200409
  Serious: Yes (Other)
  Sender: FDA-Public Use
  Company Number: NVSC2020HU078152

PATIENT
  Age: 80 Year
  Sex: Female

DRUGS (1)
  1. GENTAMICIN. [Suspect]
     Active Substance: GENTAMICIN
     Indication: PRODUCT USED FOR UNKNOWN INDICATION
     Dosage: UNK
     Route: 065
     Dates: start: 2019

REACTIONS (4)
  - Pyuria [Recovered/Resolved]
  - Renal pain [Recovered/Resolved]
  - Inflammatory marker increased [Recovered/Resolved]
  - Antimicrobial susceptibility test [Recovered/Resolved]

NARRATIVE: CASE EVENT DATE: 2019
